FAERS Safety Report 26101207 (Version 1)
Quarter: 2025Q4

REPORT INFORMATION
  Report Type: Spontaneous
  Country: US (occurrence: None)
  Receive Date: 20251128
  Receipt Date: 20251128
  Transmission Date: 20260118
  Serious: Yes (Disabling, Other)
  Sender: UCB
  Company Number: US-UCBSA-2025074039

PATIENT
  Age: 45 Year

DRUGS (2)
  1. BIMZELX [Suspect]
     Active Substance: BIMEKIZUMAB-BKZX
     Indication: Psoriasis
     Dosage: 320 MILLIGRAM, EV 4 WEEKS
  2. TRAZODONE [Concomitant]
     Active Substance: TRAZODONE HYDROCHLORIDE
     Indication: Product used for unknown indication
     Dosage: UNK

REACTIONS (7)
  - Lower limb fracture [Unknown]
  - Orthosis user [Unknown]
  - Arthralgia [Unknown]
  - Pain in extremity [Unknown]
  - Fatigue [Unknown]
  - Skin exfoliation [Unknown]
  - Feeling cold [Recovering/Resolving]
